FAERS Safety Report 20198720 (Version 1)
Quarter: 2021Q4

REPORT INFORMATION
  Report Type: Spontaneous
  Country: US (occurrence: None)
  Receive Date: 20211216
  Receipt Date: 20211216
  Transmission Date: 20220303
  Serious: No
  Sender: FDA-Public Use
  Company Number: None

PATIENT
  Age: 47 Year
  Sex: Female
  Weight: 74.25 kg

DRUGS (2)
  1. CEQUA [Suspect]
     Active Substance: CYCLOSPORINE
     Indication: Dry eye
     Dosage: OTHER QUANTITY : OTHER QUANTITY : 10 VIALS 0.25 ML EACH;?FREQUENCY : TWICE A DAY;?;?OTHER QUANTITY :
     Route: 047
     Dates: start: 20211108, end: 20211215
  2. OMEGA-3 ACIDS [Concomitant]
     Active Substance: OMEGA-3 FATTY ACIDS

REACTIONS (6)
  - Headache [None]
  - Confusional state [None]
  - Disturbance in attention [None]
  - Nausea [None]
  - Eye pain [None]
  - Loss of personal independence in daily activities [None]

NARRATIVE: CASE EVENT DATE: 20211214
